FAERS Safety Report 20855295 (Version 1)
Quarter: 2022Q2

REPORT INFORMATION
  Report Type: Spontaneous
  Country: US (occurrence: US)
  Receive Date: 20220520
  Receipt Date: 20220520
  Transmission Date: 20220721
  Serious: No
  Sender: FDA-Public Use
  Company Number: US-PFIZER INC-202200347585

PATIENT
  Age: 50 Year
  Sex: Female
  Weight: 52.62 kg

DRUGS (2)
  1. CYTOMEL [Suspect]
     Active Substance: LIOTHYRONINE SODIUM
     Indication: Hypothyroidism
     Dosage: 10 UG, 3X/DAY
  2. ARMOUR THYROID [Concomitant]
     Active Substance: THYROID, PORCINE
     Indication: Hypothyroidism
     Dosage: 120 MG
     Route: 048

REACTIONS (5)
  - Therapeutic product effect incomplete [Unknown]
  - Hyperventilation [Unknown]
  - Off label use [Unknown]
  - Intentional product use issue [Unknown]
  - Underdose [Unknown]
